FAERS Safety Report 19725957 (Version 1)
Quarter: 2021Q3

REPORT INFORMATION
  Report Type: Spontaneous
  Country: US (occurrence: US)
  Receive Date: 20210819
  Receipt Date: 20210819
  Transmission Date: 20211014
  Serious: No
  Sender: FDA-Public Use
  Company Number: US-MANNKIND CORPORATION-2020MK000092

PATIENT
  Age: 67 Year
  Sex: Female
  Weight: 91.25 kg

DRUGS (2)
  1. AFREZZA [Suspect]
     Active Substance: INSULIN HUMAN
     Indication: PRODUCT USED FOR UNKNOWN INDICATION
     Dates: start: 20200828
  2. AFREZZA [Suspect]
     Active Substance: INSULIN HUMAN
     Dates: start: 202008

REACTIONS (2)
  - Cough [Unknown]
  - Product confusion [Unknown]

NARRATIVE: CASE EVENT DATE: 202008
